FAERS Safety Report 5825109-7 (Version None)
Quarter: 2008Q3

REPORT INFORMATION
  Report Type: 
  Country: None (occurrence: None)
  Receive Date: 20080725
  Receipt Date: 20080725
  Transmission Date: 20090109
  Serious: Yes (Hospitalization)
  Sender: FDA-Public Use
  Company Number: None

PATIENT
  Age: 30 Year
  Sex: Male

DRUGS (1)
  1. RISPERDAL [Suspect]
     Indication: MENTAL DISORDER
     Dosage: 2 MG DAILY @ 5PM ORAL
     Route: 048
     Dates: start: 20080706

REACTIONS (2)
  - RESPIRATORY DISORDER [None]
  - SWOLLEN TONGUE [None]
